FAERS Safety Report 10079125 (Version 1)
Quarter: 2014Q2

REPORT INFORMATION
  Report Type: Spontaneous
  Country: US (occurrence: US)
  Receive Date: 20140415
  Receipt Date: 20140415
  Transmission Date: 20141212
  Serious: No
  Sender: FDA-Public Use
  Company Number: US-B.I. PHARMACEUTICALS,INC./RIDGEFIELD-2014-BI-15114BP

PATIENT
  Age: 54 Year
  Sex: Male

DRUGS (2)
  1. PRADAXA [Suspect]
     Indication: ATRIAL FIBRILLATION
     Route: 048
     Dates: start: 201402, end: 201403
  2. ATENOLOL [Concomitant]
     Indication: CARDIOMYOPATHY
     Dosage: 50 MG
     Route: 048

REACTIONS (1)
  - Condition aggravated [Recovered/Resolved]
